FAERS Safety Report 9438905 (Version 3)
Quarter: 2013Q4

REPORT INFORMATION
  Report Type: Report from Study
  Country: IT (occurrence: IT)
  Receive Date: 20130802
  Receipt Date: 20131022
  Transmission Date: 20140711
  Serious: Yes (Hospitalization)
  Sender: FDA-Public Use
  Company Number: IT-EXELIXIS-XL18413002879

PATIENT
  Age: 78 Year
  Sex: Male
  Weight: 86 kg

DRUGS (10)
  1. XL184 [Suspect]
     Indication: PROSTATE CANCER
     Dosage: 60 MG, QD
     Route: 048
     Dates: start: 20130508, end: 20130618
  2. XL184 [Suspect]
     Indication: PROSTATE CANCER
     Dosage: 5 MG, BID
     Route: 048
     Dates: start: 20130508, end: 20130618
  3. DECAPEPTYL [Concomitant]
  4. CONGESCOR [Concomitant]
  5. MEDROL [Concomitant]
  6. SELEPARINA [Concomitant]
  7. ZOFRAN [Concomitant]
  8. CALCIUM GLUCONATE [Concomitant]
  9. IBUPROFEN [Concomitant]
  10. PAMIDRONATE DISODIUM [Concomitant]

REACTIONS (2)
  - Anaemia [Recovered/Resolved]
  - Asthenia [Not Recovered/Not Resolved]
